FAERS Safety Report 17713047 (Version 1)
Quarter: 2020Q2

REPORT INFORMATION
  Report Type: Spontaneous
  Country: US (occurrence: US)
  Receive Date: 20200427
  Receipt Date: 20200427
  Transmission Date: 20200714
  Serious: Yes (Hospitalization)
  Sender: FDA-Public Use
  Company Number: None

PATIENT
  Age: 23 Year
  Weight: 40.05 kg

DRUGS (3)
  1. DULOXETINE. [Suspect]
     Active Substance: DULOXETINE
     Indication: PAIN
     Route: 048
     Dates: start: 20200201, end: 20200425
  2. DULOXETINE. [Suspect]
     Active Substance: DULOXETINE
     Indication: DEPRESSION
     Route: 048
     Dates: start: 20200201, end: 20200425
  3. BUPROPRION [Suspect]
     Active Substance: BUPROPION
     Indication: DEPRESSION
     Route: 048
     Dates: start: 20200421, end: 20200424

REACTIONS (7)
  - Agitation [None]
  - Insomnia [None]
  - Tremor [None]
  - Hypertonia [None]
  - Memory impairment [None]
  - Hyperreflexia [None]
  - Clonus [None]

NARRATIVE: CASE EVENT DATE: 20200424
